FAERS Safety Report 6459091-9 (Version None)
Quarter: 2009Q4

REPORT INFORMATION
  Report Type: 
  Country: None (occurrence: None)
  Receive Date: 20091125
  Receipt Date: 20091125
  Transmission Date: 20100525
  Serious: Yes (Hospitalization, Other)
  Sender: FDA-Public Use
  Company Number: None

PATIENT
  Age: 33 Year
  Sex: Male
  Weight: 107.2 kg

DRUGS (1)
  1. SERTRALINE HCL [Suspect]
     Dosage: 100 MG EVERY DAY PO
     Route: 048
     Dates: start: 20081217

REACTIONS (7)
  - ANHEDONIA [None]
  - DECREASED APPETITE [None]
  - DEPRESSION [None]
  - OVERDOSE [None]
  - SEDATION [None]
  - SUICIDE ATTEMPT [None]
  - TREATMENT NONCOMPLIANCE [None]
